FAERS Safety Report 7980022-4 (Version None)
Quarter: 2011Q4

REPORT INFORMATION
  Report Type: 
  Country: None (occurrence: None)
  Receive Date: 20111214
  Receipt Date: 20111204
  Transmission Date: 20120403
  Serious: Yes (Other)
  Sender: FDA-Public Use
  Company Number: PHHY2011CA105677

PATIENT

DRUGS (9)
  1. ALISKIREN [Suspect]
     Indication: PROTEINURIA
     Dosage: 300 MG
     Route: 048
     Dates: start: 20101014
  2. ANGIOTENSIN II ANTAGONISTS [Concomitant]
  3. HYDROCHLOROTHIAZIDE [Concomitant]
  4. METFORMIN HCL [Concomitant]
     Dosage: 300 MG, BID
  5. LASIX [Concomitant]
     Dosage: 40 MG
  6. ACTONEL [Concomitant]
     Dosage: 35 MG
  7. CALCIUM CHANNEL BLOCKERS [Concomitant]
  8. DIURETICS [Concomitant]
  9. NORVASC [Concomitant]
     Dosage: 2.5 MG

REACTIONS (3)
  - URINE ALBUMIN/CREATININE RATIO INCREASED [None]
  - HEART RATE DECREASED [None]
  - BLOOD PRESSURE DIASTOLIC DECREASED [None]
